FAERS Safety Report 18183406 (Version 2)
Quarter: 2021Q3

REPORT INFORMATION
  Report Type: Report from Study
  Country: CA (occurrence: CA)
  Receive Date: 20200822
  Receipt Date: 20210709
  Transmission Date: 20211014
  Serious: Yes (Other)
  Sender: FDA-Public Use
  Company Number: NVSC2019CA035877

PATIENT
  Age: 17 Year
  Sex: Male

DRUGS (11)
  1. ILARIS [Suspect]
     Active Substance: CANAKINUMAB
     Indication: STILL^S DISEASE
     Dosage: 280 MG, EVERY 10 WEEKS
     Route: 058
     Dates: start: 20191008
  2. PREDNISONE. [Concomitant]
     Active Substance: PREDNISONE
     Indication: PRODUCT USED FOR UNKNOWN INDICATION
     Dosage: UNK
     Route: 065
  3. METHOTREXATE. [Concomitant]
     Active Substance: METHOTREXATE
     Indication: PRODUCT USED FOR UNKNOWN INDICATION
     Dosage: UNK
     Route: 065
  4. ACTEMRA [Concomitant]
     Active Substance: TOCILIZUMAB
     Indication: PRODUCT USED FOR UNKNOWN INDICATION
     Dosage: UNK
     Route: 065
  5. KINERET [Concomitant]
     Active Substance: ANAKINRA
     Indication: PRODUCT USED FOR UNKNOWN INDICATION
     Dosage: UNK
     Route: 065
  6. CYCLOSPORINE. [Concomitant]
     Active Substance: CYCLOSPORINE
     Indication: PRODUCT USED FOR UNKNOWN INDICATION
     Dosage: 60 MG, BID
     Route: 065
     Dates: start: 201908
  7. ILARIS [Suspect]
     Active Substance: CANAKINUMAB
     Dosage: 280 MG EVERY 6 WEEK
     Route: 058
     Dates: start: 20200814
  8. ILARIS [Suspect]
     Active Substance: CANAKINUMAB
     Dosage: 280 MG, Q4W
     Route: 058
     Dates: start: 20200717
  9. ILARIS [Suspect]
     Active Substance: CANAKINUMAB
     Dosage: 280 OT, Q4W
     Route: 058
     Dates: start: 20200130
  10. ILARIS [Suspect]
     Active Substance: CANAKINUMAB
     Dosage: 280 OT, Q4W
     Route: 058
     Dates: start: 20200227
  11. ILARIS [Suspect]
     Active Substance: CANAKINUMAB
     Dosage: 280 EVERY 12 WEEKS
     Dates: start: 20210628

REACTIONS (8)
  - Hyperpyrexia [Recovered/Resolved]
  - Blood lactic acid increased [Unknown]
  - Inappropriate schedule of product administration [Unknown]
  - Illness [Recovered/Resolved]
  - Viral infection [Recovered/Resolved]
  - Blood pressure decreased [Unknown]
  - Aspartate aminotransferase increased [Unknown]
  - Acne [Unknown]

NARRATIVE: CASE EVENT DATE: 2019
